FAERS Safety Report 5525367-2 (Version None)
Quarter: 2007Q4

REPORT INFORMATION
  Report Type: 
  Country: None (occurrence: None)
  Receive Date: 20071120
  Receipt Date: 20070815
  Transmission Date: 20080405
  Serious: No
  Sender: FDA-Public Use
  Company Number: US-1163897

PATIENT
  Age: 56 Year
  Sex: Female
  Weight: 62.5964 kg

DRUGS (11)
  1. NEVANAC [Suspect]
     Indication: CHORIORETINOPATHY
     Dosage: 1 GTT QID    OPHTHALMIC
     Route: 047
     Dates: start: 20070517
  2. NEVANAC [Suspect]
     Indication: MACULAR OEDEMA
     Dosage: 1 GTT QID    OPHTHALMIC
     Route: 047
     Dates: start: 20070517
  3. PRED FORTE [Concomitant]
  4. WELLBUTRIN [Concomitant]
  5. DIAMOX [Concomitant]
  6. COSOPT [Concomitant]
  7. DACLIZUMAB [Concomitant]
  8. CYCLOSPORINE [Concomitant]
  9. PREDNISONE TAB [Concomitant]
  10. ALOMIDE [Concomitant]
  11. MYCOPHENOLATE MOFETIL [Concomitant]

REACTIONS (1)
  - BLOOD CREATINE INCREASED [None]
